FAERS Safety Report 4443321-9 (Version None)
Quarter: 2004Q3

REPORT INFORMATION
  Report Type: 
  Country: None (occurrence: None)
  Receive Date: 20040908
  Receipt Date: 20040806
  Transmission Date: 20050211
  Serious: Yes (Other)
  Sender: FDA-Public Use
  Company Number: 200418239GDDC

PATIENT
  Age: 58 Year
  Sex: Female

DRUGS (2)
  1. ARAVA [Suspect]
     Indication: RHEUMATOID ARTHRITIS
     Dosage: DOSE: UNK
     Dates: start: 20020101
  2. METOPROLOL [Concomitant]
     Indication: HYPERTENSION
     Dosage: DOSE: UNK

REACTIONS (5)
  - ALOPECIA [None]
  - ANDROGENS INCREASED [None]
  - BLOOD TESTOSTERONE INCREASED [None]
  - DYSPHONIA [None]
  - HIRSUTISM [None]
